FAERS Safety Report 24948670 (Version 1)
Quarter: 2025Q1

REPORT INFORMATION
  Report Type: Spontaneous
  Country: IT (occurrence: IT)
  Receive Date: 20250210
  Receipt Date: 20250210
  Transmission Date: 20250409
  Serious: Yes (Death, Hospitalization, Other)
  Sender: ACCORD
  Company Number: IT-EMA-DD-20250109-7482675-053328

PATIENT
  Age: 52 Year
  Sex: Female

DRUGS (6)
  1. BORTEZOMIB [Suspect]
     Active Substance: BORTEZOMIB
     Indication: Plasma cell myeloma
  2. THALIDOMIDE [Suspect]
     Active Substance: THALIDOMIDE
     Indication: Plasma cell myeloma
  3. DARATUMUMAB [Suspect]
     Active Substance: DARATUMUMAB
     Indication: Plasma cell myeloma
  4. DEXAMETHASONE [Suspect]
     Active Substance: DEXAMETHASONE
     Indication: Plasma cell myeloma
  5. ASPIRIN [Concomitant]
     Active Substance: ASPIRIN
     Indication: Prophylaxis
  6. TRANEXAMIC ACID [Concomitant]
     Active Substance: TRANEXAMIC ACID
     Indication: Coagulopathy

REACTIONS (11)
  - Hepatic function abnormal [Unknown]
  - Factor VII deficiency [Unknown]
  - Plasma cell leukaemia [Unknown]
  - Haemorrhage intracranial [Fatal]
  - Plasma cell myeloma [Unknown]
  - Acute respiratory distress syndrome [Unknown]
  - Interstitial lung disease [Unknown]
  - Cytomegalovirus infection [Unknown]
  - Cardiac failure congestive [Recovered/Resolved]
  - Hepatosplenomegaly [Unknown]
  - Coagulopathy [Unknown]
